FAERS Safety Report 13699480 (Version 1)
Quarter: 2017Q2

REPORT INFORMATION
  Report Type: Spontaneous
  Country: US (occurrence: US)
  Receive Date: 20170629
  Receipt Date: 20170629
  Transmission Date: 20170830
  Serious: No
  Sender: FDA-Public Use
  Company Number: US-BIOGEN-2017BI00420824

PATIENT
  Age: 48 Year
  Sex: Female

DRUGS (3)
  1. TYSABRI [Suspect]
     Active Substance: NATALIZUMAB
     Route: 065
     Dates: start: 20160520
  2. TYSABRI [Suspect]
     Active Substance: NATALIZUMAB
     Indication: MULTIPLE SCLEROSIS
     Dosage: OVER 1 HOUR INFUSION
     Route: 042
     Dates: start: 20071228, end: 20101026
  3. TYSABRI [Suspect]
     Active Substance: NATALIZUMAB
     Route: 065
     Dates: start: 20110307, end: 20130607

REACTIONS (2)
  - Multiple sclerosis relapse [Not Recovered/Not Resolved]
  - Cervical myelopathy [Not Recovered/Not Resolved]

NARRATIVE: CASE EVENT DATE: 201706
